FAERS Safety Report 10519044 (Version 4)
Quarter: 2014Q4

REPORT INFORMATION
  Report Type: Report from Study
  Country: IT (occurrence: IT)
  Receive Date: 20141015
  Receipt Date: 20141222
  Transmission Date: 20150528
  Serious: Yes (Hospitalization)
  Sender: FDA-Public Use
  Company Number: IT-SA-2014SA135166

PATIENT
  Age: 30 Year
  Sex: Female
  Weight: 54 kg

DRUGS (8)
  1. DEPAKINE [Concomitant]
     Active Substance: VALPROATE SODIUM
     Route: 065
     Dates: start: 20140720
  2. RIVOTRIL [Concomitant]
     Active Substance: CLONAZEPAM
     Route: 065
     Dates: start: 201109
  3. DEPAKINE [Concomitant]
     Active Substance: VALPROATE SODIUM
     Route: 065
     Dates: start: 20140529
  4. LAMICTAL [Concomitant]
     Active Substance: LAMOTRIGINE
     Route: 065
     Dates: start: 201109
  5. RIVOTRIL [Concomitant]
     Active Substance: CLONAZEPAM
     Route: 065
     Dates: start: 20140915
  6. DEPAKINE [Concomitant]
     Active Substance: VALPROATE SODIUM
     Route: 065
     Dates: start: 201109
  7. TERIFLUNOMIDE [Suspect]
     Active Substance: TERIFLUNOMIDE
     Indication: MULTIPLE SCLEROSIS RELAPSE
     Route: 048
     Dates: start: 20140526, end: 20140904
  8. JASMINE [Concomitant]
     Active Substance: DROSPIRENONE\ETHINYL ESTRADIOL
     Dosage: DOSE:1 UNIT(S)
     Route: 065

REACTIONS (1)
  - Epilepsy [Recovered/Resolved]

NARRATIVE: CASE EVENT DATE: 20140915
